FAERS Safety Report 10537254 (Version 1)
Quarter: 2014Q4

REPORT INFORMATION
  Report Type: Spontaneous
  Country: FR (occurrence: FR)
  Receive Date: 20141023
  Receipt Date: 20141023
  Transmission Date: 20150529
  Serious: Yes (Hospitalization, Other)
  Sender: FDA-Public Use
  Company Number: FR-MERCK-1410FRA009480

PATIENT
  Sex: Male
  Weight: 60 kg

DRUGS (4)
  1. SUBUTEX [Concomitant]
     Active Substance: BUPRENORPHINE HYDROCHLORIDE
     Indication: PAIN
     Dosage: 6 MG TOTAL DAILY DOSE, GREQUENCY QD,
  2. RIBAVIRIN. [Suspect]
     Active Substance: RIBAVIRIN
     Indication: HEPATITIS C
     Dosage: TOTAL DAILY DOSE 2 TABLETS, QD
     Route: 048
     Dates: start: 201210, end: 201309
  3. INTERFERON ALFA-2B [Suspect]
     Active Substance: INTERFERON ALFA-2B
     Indication: HEPATITIS C
     Dosage: UNK, QW
     Dates: start: 201210, end: 201309
  4. VICTRELIS [Suspect]
     Active Substance: BOCEPREVIR
     Indication: HEPATITIS C
     Dosage: TOTAL DIALY DOSE 16 CAPSULES, QD
     Route: 048
     Dates: start: 201210, end: 201309

REACTIONS (10)
  - Dysstasia [Unknown]
  - Aphasia [Unknown]
  - Hepatic neoplasm [Unknown]
  - Hemiplegia [Unknown]
  - Eyelid ptosis [Unknown]
  - Sleep disorder [Unknown]
  - Weight decreased [Unknown]
  - Anaemia [Unknown]
  - Platelet disorder [Unknown]
  - Headache [Unknown]
